FAERS Safety Report 6270584-X (Version None)
Quarter: 2009Q3

REPORT INFORMATION
  Report Type: 
  Country: None (occurrence: None)
  Receive Date: 20090716
  Receipt Date: 20090708
  Transmission Date: 20100115
  Serious: Yes (Hospitalization)
  Sender: FDA-Public Use
  Company Number: BR-JNJFOC-20090703048

PATIENT
  Age: 46 Year
  Sex: Female

DRUGS (2)
  1. REMICADE [Suspect]
     Route: 042
  2. REMICADE [Suspect]
     Indication: PSORIASIS
     Dosage: 11 INFUSIONS ON UNSPECIFIED DATES
     Route: 042

REACTIONS (2)
  - CYTOMEGALOVIRUS INFECTION [None]
  - MUSCULOSKELETAL PAIN [None]
